FAERS Safety Report 7592017-3 (Version None)
Quarter: 2011Q2

REPORT INFORMATION
  Report Type: 
  Country: None (occurrence: None)
  Receive Date: 20110628
  Receipt Date: 20110622
  Transmission Date: 20111010
  Serious: Yes (Hospitalization, Other)
  Sender: FDA-Public Use
  Company Number: 2011SP024633

PATIENT
  Sex: Female

DRUGS (1)
  1. PEGATRON (PEGYLATED INTERFERON ALFA-2B W/RIBAVIRIN) [Suspect]
     Indication: HEPATITIS C
     Dosage: BID
     Dates: start: 20110221

REACTIONS (7)
  - FATIGUE [None]
  - FAECALOMA [None]
  - ACTIVITIES OF DAILY LIVING IMPAIRED [None]
  - COUGH [None]
  - RASH PRURITIC [None]
  - INTESTINAL OBSTRUCTION [None]
  - DYSPEPSIA [None]
